FAERS Safety Report 8326822-2 (Version None)
Quarter: 2012Q2

REPORT INFORMATION
  Report Type: 
  Country: None (occurrence: None)
  Receive Date: 20120501
  Receipt Date: 20120424
  Transmission Date: 20120825
  Serious: Yes (Hospitalization, Other)
  Sender: FDA-Public Use
  Company Number: NZ-ABBOTT-10P-118-0678734-00

PATIENT
  Age: 33 Year
  Sex: Female
  Weight: 45 kg

DRUGS (1)
  1. HUMIRA [Suspect]
     Indication: PSORIASIS
     Dates: start: 20100929, end: 20101010

REACTIONS (4)
  - CONFUSIONAL STATE [None]
  - HEADACHE [None]
  - ENCEPHALITIS [None]
  - MENINGITIS [None]
